FAERS Safety Report 16653374 (Version 2)
Quarter: 2019Q3

REPORT INFORMATION
  Report Type: Spontaneous
  Country: DK (occurrence: DK)
  Receive Date: 20190731
  Receipt Date: 20190809
  Transmission Date: 20191004
  Serious: Yes (Disabling, Other)
  Sender: FDA-Public Use
  Company Number: DK-PFIZER INC-2019323319

PATIENT
  Age: 64 Year
  Sex: Male

DRUGS (4)
  1. DEPO-MEDROL [Concomitant]
     Active Substance: METHYLPREDNISOLONE ACETATE
     Indication: PSORIATIC ARTHROPATHY
     Dosage: 1 ML, UNK
     Dates: start: 201209
  2. METHOTREXATE. [Suspect]
     Active Substance: METHOTREXATE
     Dosage: 30 MG, WEEKLY
     Route: 048
     Dates: start: 2013, end: 20170110
  3. METHOTREXATE. [Suspect]
     Active Substance: METHOTREXATE
     Dosage: 20 MG, WEEKLY
     Route: 048
  4. METHOTREXATE. [Suspect]
     Active Substance: METHOTREXATE
     Indication: PSORIATIC ARTHROPATHY
     Dosage: 10 MG, WEEKLY
     Route: 048
     Dates: start: 20120927

REACTIONS (6)
  - Total lung capacity decreased [Not Recovered/Not Resolved]
  - Dyspnoea exertional [Unknown]
  - Pneumonitis [Recovered/Resolved with Sequelae]
  - Pulmonary fibrosis [Not Recovered/Not Resolved]
  - Pulmonary hypertension [Unknown]
  - Cough [Unknown]

NARRATIVE: CASE EVENT DATE: 2013
